FAERS Safety Report 13123377 (Version 1)
Quarter: 2017Q1

REPORT INFORMATION
  Report Type: Spontaneous
  Country: US (occurrence: US)
  Receive Date: 20170117
  Receipt Date: 20170117
  Transmission Date: 20170428
  Serious: No
  Sender: FDA-Public Use
  Company Number: US-ALLERGAN-1671658US

PATIENT
  Age: 62 Year
  Sex: Male

DRUGS (5)
  1. CLONIDINE. [Concomitant]
     Active Substance: CLONIDINE
     Indication: PRODUCT USED FOR UNKNOWN INDICATION
     Dosage: 0.1 MG, BID
     Route: 048
  2. SIMVASTATIN. [Concomitant]
     Active Substance: SIMVASTATIN
     Indication: BLOOD CHOLESTEROL INCREASED
     Dosage: 20 MG, UNK
     Route: 048
  3. ZOFRAN [Concomitant]
     Active Substance: ONDANSETRON HYDROCHLORIDE
     Indication: NAUSEA
     Dosage: 4 MG, PRN
     Route: 048
  4. DALVANCE [Suspect]
     Active Substance: DALBAVANCIN
     Indication: CELLULITIS
     Dosage: 1500 MG, SINGLE
     Route: 042
     Dates: start: 20161005, end: 20161005
  5. QUINAPRIL. [Concomitant]
     Active Substance: QUINAPRIL
     Indication: HYPERTENSION
     Dosage: 20 MG, UNK
     Route: 048

REACTIONS (5)
  - Injection site erythema [Recovered/Resolved]
  - Administration site warmth [Recovered/Resolved]
  - Administration site pain [Recovered/Resolved]
  - Induration [Recovered/Resolved]
  - Administration site swelling [Recovered/Resolved]

NARRATIVE: CASE EVENT DATE: 20161006
